FAERS Safety Report 6051956-5 (Version None)
Quarter: 2009Q1

REPORT INFORMATION
  Report Type: 
  Country: None (occurrence: None)
  Receive Date: 20090121
  Receipt Date: 20090121
  Transmission Date: 20090719
  Serious: No
  Sender: FDA-Public Use
  Company Number: None

PATIENT
  Age: 47 Year
  Sex: Female

DRUGS (5)
  1. WELLBUTRIN [Suspect]
     Indication: BORDERLINE PERSONALITY DISORDER
     Dosage: 150MG BID PO
     Route: 048
  2. WELLBUTRIN [Suspect]
     Indication: DEPRESSION
     Dosage: 150MG BID PO
     Route: 048
  3. LAMICTAL [Concomitant]
  4. KLONOPIN [Concomitant]
  5. ABILIFY [Concomitant]

REACTIONS (4)
  - DRUG EFFECT DECREASED [None]
  - FATIGUE [None]
  - PRODUCT QUALITY ISSUE [None]
  - SEDATION [None]
